FAERS Safety Report 25673993 (Version 1)
Quarter: 2025Q3

REPORT INFORMATION
  Report Type: Spontaneous
  Country: US (occurrence: US)
  Receive Date: 20250813
  Receipt Date: 20250813
  Transmission Date: 20251020
  Serious: No
  Sender: SUNOVION
  Company Number: US-SMPA-2025SPA010061

PATIENT
  Age: 89 Year
  Sex: Male

DRUGS (2)
  1. GEMTESA [Suspect]
     Active Substance: VIBEGRON
     Indication: Hypertonic bladder
     Dosage: 75 MG, QD
     Route: 048
     Dates: start: 202507
  2. GEMTESA [Suspect]
     Active Substance: VIBEGRON
     Indication: Pollakiuria

REACTIONS (1)
  - Thirst [Unknown]

NARRATIVE: CASE EVENT DATE: 20250701
